FAERS Safety Report 8144768-X (Version None)
Quarter: 2012Q1

REPORT INFORMATION
  Report Type: 
  Country: None (occurrence: None)
  Receive Date: 20120217
  Receipt Date: 20120208
  Transmission Date: 20120608
  Serious: Yes (Hospitalization)
  Sender: FDA-Public Use
  Company Number: US-JNJFOC-20120205629

PATIENT
  Sex: Female
  Weight: 64 kg

DRUGS (5)
  1. M.V.I. [Concomitant]
  2. MESALAMINE [Concomitant]
     Route: 048
  3. IRON [Concomitant]
  4. HUMALOG [Concomitant]
  5. REMICADE [Suspect]
     Indication: COLITIS ULCERATIVE
     Route: 042
     Dates: start: 20091221

REACTIONS (1)
  - COLITIS ULCERATIVE [None]
